FAERS Safety Report 4692351-0 (Version None)
Quarter: 2005Q2

REPORT INFORMATION
  Report Type: 
  Country: None (occurrence: None)
  Receive Date: 20050616
  Receipt Date: 20050601
  Transmission Date: 20051028
  Serious: Yes (Death, Disabling, Other)
  Sender: FDA-Public Use
  Company Number: US-GLAXOSMITHKLINE-A0560701A

PATIENT
  Age: 78 Year
  Sex: Female
  Weight: 57 kg

DRUGS (6)
  1. CITRUCEL REGULAR SUSPENSION [Suspect]
     Dosage: 1TBS PER DAY
     Route: 048
     Dates: start: 19840101
  2. INDERAL [Concomitant]
     Dates: start: 19780101, end: 19870101
  3. DIPYRIDAMOLE [Concomitant]
  4. ZYLOPRIM [Concomitant]
  5. ASPIRIN [Concomitant]
  6. UNKNOWN BLOOD PRESSURE MEDICATION [Concomitant]

REACTIONS (8)
  - ABASIA [None]
  - DEATH [None]
  - DEMENTIA ALZHEIMER'S TYPE [None]
  - DISORIENTATION [None]
  - HIP FRACTURE [None]
  - MEMORY IMPAIRMENT [None]
  - MENTAL IMPAIRMENT [None]
  - SPEECH DISORDER [None]
